FAERS Safety Report 9894599 (Version 6)
Quarter: 2015Q2

REPORT INFORMATION
  Report Type: Spontaneous
  Country: US (occurrence: US)
  Receive Date: 20140213
  Receipt Date: 20150520
  Transmission Date: 20150821
  Serious: Yes (Death, Disabling)
  Sender: FDA-Public Use
  Company Number: US-GE HEALTHCARE MEDICAL DIAGNOSTICS-OSCN-PR-0904S-0181

PATIENT
  Age: 30 Year
  Sex: Male

DRUGS (28)
  1. OMNISCAN [Suspect]
     Active Substance: GADODIAMIDE
     Indication: HEADACHE
     Dosage: DOSE NOT REPORTED
     Route: 042
     Dates: start: 20050725, end: 20050725
  2. PROHANCE [Suspect]
     Active Substance: GADOTERIDOL
     Indication: NECK PAIN
  3. HECTOROL [Concomitant]
     Active Substance: DOXERCALCIFEROL
  4. QUININE [Concomitant]
     Active Substance: QUININE
  5. VITAMIN B [Concomitant]
     Active Substance: VITAMIN B
  6. FOSRENOL [Concomitant]
     Active Substance: LANTHANUM CARBONATE
  7. CLONIDINE. [Concomitant]
     Active Substance: CLONIDINE
  8. VENOFER [Concomitant]
     Active Substance: IRON SUCROSE
  9. ALTACE [Concomitant]
     Active Substance: RAMIPRIL
  10. ZOLOFT [Concomitant]
     Active Substance: SERTRALINE HYDROCHLORIDE
  11. DEPAKOTE [Concomitant]
     Active Substance: DIVALPROEX SODIUM
  12. GABAPENTIN. [Concomitant]
     Active Substance: GABAPENTIN
  13. OMNISCAN [Suspect]
     Active Substance: GADODIAMIDE
     Indication: HEADACHE
     Route: 042
     Dates: start: 20041202, end: 20041202
  14. OMNISCAN [Suspect]
     Active Substance: GADODIAMIDE
     Indication: BRAIN NEOPLASM
     Dosage: DOSE NOT REPORTED
     Route: 042
     Dates: start: 20060321, end: 20060321
  15. EPOGEN [Concomitant]
     Active Substance: ERYTHROPOIETIN
  16. PHOSLO [Concomitant]
     Active Substance: CALCIUM ACETATE
  17. OMNISCAN [Suspect]
     Active Substance: GADODIAMIDE
     Indication: DIAGNOSTIC PROCEDURE
     Dosage: DOSE NOT REPORTED
     Route: 042
     Dates: start: 20060305, end: 20060305
  18. OMNISCAN [Suspect]
     Active Substance: GADODIAMIDE
     Indication: INFLAMMATION
     Dosage: DOSE NOT REPORTED
     Route: 042
     Dates: start: 20060824, end: 20060824
  19. PROHANCE [Suspect]
     Active Substance: GADOTERIDOL
     Indication: DIZZINESS
  20. LOPRESSOR [Concomitant]
     Active Substance: METOPROLOL TARTRATE
  21. IMURAN [Concomitant]
     Active Substance: AZATHIOPRINE
  22. PROHANCE [Suspect]
     Active Substance: GADOTERIDOL
     Indication: HEADACHE
  23. SINEMET [Concomitant]
     Active Substance: CARBIDOPA\LEVODOPA
  24. SENSIPAR [Concomitant]
     Active Substance: CINACALCET HYDROCHLORIDE
  25. LOTENSIN [Concomitant]
     Active Substance: BENAZEPRIL HYDROCHLORIDE
  26. LUNESTA [Concomitant]
     Active Substance: ESZOPICLONE
  27. OMNISCAN [Suspect]
     Active Substance: GADODIAMIDE
     Indication: MASS
     Route: 042
     Dates: start: 20040915, end: 20040915
  28. PROHANCE [Suspect]
     Active Substance: GADOTERIDOL
     Indication: MENINGIOMA
     Dates: start: 20080425, end: 20080425

REACTIONS (1)
  - Nephrogenic systemic fibrosis [Fatal]

NARRATIVE: CASE EVENT DATE: 20060501
